FAERS Safety Report 13673495 (Version 1)
Quarter: 2017Q2

REPORT INFORMATION
  Report Type: Spontaneous
  Country: FR (occurrence: FR)
  Receive Date: 20170621
  Receipt Date: 20170621
  Transmission Date: 20170830
  Serious: Yes (Other)
  Sender: FDA-Public Use
  Company Number: FR-ASPEN PHARMA TRADING LIMITED US-AG-2017-004262

PATIENT
  Sex: Male

DRUGS (1)
  1. BUSULFAN. [Suspect]
     Active Substance: BUSULFAN
     Indication: BONE MARROW CONDITIONING REGIMEN
     Dosage: THE TOTAL BUSULFAN AREA UNDER THE CURVE ACHIEVED WAS 19,363 1-L MOL  PER MINUTE.
     Route: 042

REACTIONS (8)
  - Neutropenia [Recovered/Resolved]
  - Anaemia [Recovered/Resolved]
  - Gamma-glutamyltransferase increased [Recovered/Resolved]
  - Thrombocytopenia [Recovered/Resolved]
  - Aspartate aminotransferase increased [Recovered/Resolved]
  - Staphylococcal infection [Recovered/Resolved]
  - Alanine aminotransferase increased [Recovered/Resolved]
  - Pain in extremity [Recovered/Resolved]
